FAERS Safety Report 7603080-5 (Version None)
Quarter: 2011Q3

REPORT INFORMATION
  Report Type: 
  Country: None (occurrence: None)
  Receive Date: 20110711
  Receipt Date: 20110711
  Transmission Date: 20111222
  Serious: No
  Sender: FDA-Public Use
  Company Number: None

PATIENT
  Age: 44 Year
  Sex: Male
  Weight: 79.3795 kg

DRUGS (1)
  1. FINASTERIDE [Suspect]
     Indication: ANDROGENETIC ALOPECIA
     Dosage: 5MG 1MG/DAY
     Dates: start: 20050405, end: 20110608

REACTIONS (11)
  - SUICIDAL IDEATION [None]
  - ASTHENIA [None]
  - AMNESIA [None]
  - PAIN [None]
  - DEPRESSION [None]
  - ERECTILE DYSFUNCTION [None]
  - LIBIDO DECREASED [None]
  - IRRITABILITY [None]
  - ANXIETY [None]
  - DISTURBANCE IN ATTENTION [None]
  - ARTHRALGIA [None]
